FAERS Safety Report 7299588-5 (Version None)
Quarter: 2010Q4

REPORT INFORMATION
  Report Type: 
  Country: None (occurrence: None)
  Receive Date: 20101223
  Receipt Date: 20100817
  Transmission Date: 20110411
  Serious: Yes (Hospitalization)
  Sender: FDA-Public Use
  Company Number: 309985

PATIENT
  Sex: Male

DRUGS (2)
  1. LEVEMIR [Suspect]
     Indication: DIABETES MELLITUS
  2. LEVEMIR [Suspect]

REACTIONS (2)
  - DIABETIC KETOACIDOSIS [None]
  - INCORRECT PRODUCT STORAGE [None]
